FAERS Safety Report 4917641-5 (Version None)
Quarter: 2006Q1

REPORT INFORMATION
  Report Type: 
  Country: None (occurrence: None)
  Receive Date: 20060215
  Receipt Date: 20060207
  Transmission Date: 20060701
  Serious: Yes (Other)
  Sender: FDA-Public Use
  Company Number: 2006019692

PATIENT
  Sex: Female
  Weight: 29.0302 kg

DRUGS (1)
  1. ZYRTEC [Suspect]
     Indication: HYPERSENSITIVITY
     Dosage: (5 CC, )

REACTIONS (6)
  - BLOOD POTASSIUM DECREASED [None]
  - DIZZINESS [None]
  - LOSS OF CONSCIOUSNESS [None]
  - NASAL CONGESTION [None]
  - PULMONARY VALVE STENOSIS [None]
  - SLEEP APNOEA SYNDROME [None]
